FAERS Safety Report 8050909-5 (Version None)
Quarter: 2012Q1

REPORT INFORMATION
  Report Type: 
  Country: None (occurrence: None)
  Receive Date: 20120117
  Receipt Date: 20120110
  Transmission Date: 20120608
  Serious: Yes (Death, Hospitalization, Other)
  Sender: FDA-Public Use
  Company Number: PHHY2010US26100

PATIENT
  Sex: Male
  Weight: 77.551 kg

DRUGS (10)
  1. EXJADE [Suspect]
     Dosage: 1000 MG, BID
     Route: 048
  2. HYDREA [Concomitant]
  3. GABAPENTIN [Concomitant]
  4. FOLIC ACID [Concomitant]
  5. DEMEROL [Concomitant]
  6. OXYCODONE HCL [Concomitant]
  7. HYDROXYUREA [Concomitant]
  8. DURAGESIC-100 [Concomitant]
  9. OXYCONTIN [Concomitant]
  10. XOLOX [Concomitant]

REACTIONS (18)
  - HYPOXIC-ISCHAEMIC ENCEPHALOPATHY [None]
  - PAIN [None]
  - BRAIN HERNIATION [None]
  - PULSELESS ELECTRICAL ACTIVITY [None]
  - BRAIN INJURY [None]
  - MULTI-ORGAN FAILURE [None]
  - BLOOD BILIRUBIN INCREASED [None]
  - HAEMATOCRIT DECREASED [None]
  - PULMONARY EMBOLISM [None]
  - BRAIN DEATH [None]
  - PYREXIA [None]
  - ALANINE AMINOTRANSFERASE INCREASED [None]
  - HAEMOGLOBIN DECREASED [None]
  - ARTHRALGIA [None]
  - SICKLE CELL ANAEMIA WITH CRISIS [None]
  - SOMNOLENCE [None]
  - BLOOD LACTATE DEHYDROGENASE INCREASED [None]
  - ASPARTATE AMINOTRANSFERASE INCREASED [None]
